FAERS Safety Report 16665871 (Version 4)
Quarter: 2019Q3

REPORT INFORMATION
  Report Type: Report from Study
  Country: None (occurrence: TW)
  Receive Date: 20190804
  Receipt Date: 20190909
  Transmission Date: 20191004
  Serious: Yes (Hospitalization)
  Sender: FDA-Public Use
  Company Number: TW-ABBVIE-19K-153-2872162-00

PATIENT
  Age: 51 Year
  Sex: Female
  Weight: 56 kg

DRUGS (1)
  1. HUMIRA [Suspect]
     Active Substance: ADALIMUMAB
     Indication: COLITIS ULCERATIVE
     Route: 058
     Dates: start: 20190618, end: 20190715

REACTIONS (6)
  - Proctitis ulcerative [Recovering/Resolving]
  - Bronchiectasis [Unknown]
  - Interstitial lung disease [Recovering/Resolving]
  - Vertebral osteophyte [Unknown]
  - Spinal osteoarthritis [Unknown]
  - Emphysema [Unknown]

NARRATIVE: CASE EVENT DATE: 201906
